FAERS Safety Report 22987287 (Version 2)
Quarter: 2024Q3

REPORT INFORMATION
  Report Type: Report from Study
  Country: BE (occurrence: BE)
  Receive Date: 20230926
  Receipt Date: 20240718
  Transmission Date: 20241016
  Serious: Yes (Hospitalization, Other)
  Sender: BIOCON
  Company Number: BE-SEATTLE GENETICS-2023SGN10019

PATIENT

DRUGS (6)
  1. TRASTUZUMAB [Suspect]
     Active Substance: TRASTUZUMAB
     Indication: HER2 positive breast cancer
     Dosage: UNK, INJECTION
     Route: 065
  2. CAPECITABINE [Suspect]
     Active Substance: CAPECITABINE
     Indication: HER2 positive breast cancer
     Dosage: UNK
     Route: 065
  3. CAPECITABINE [Suspect]
     Active Substance: CAPECITABINE
     Dosage: UNK, 14 DAYS, Q3WEEKS
     Route: 065
     Dates: start: 20230301, end: 20230816
  4. TUCATINIB [Suspect]
     Active Substance: TUCATINIB
     Indication: HER2 positive breast cancer
     Dosage: UNK
     Route: 048
     Dates: start: 20230412
  5. TUCATINIB [Suspect]
     Active Substance: TUCATINIB
     Dosage: 600 MILLIGRAM, QD, 300 MG, BID
     Route: 048
     Dates: start: 20230412
  6. TUCATINIB [Suspect]
     Active Substance: TUCATINIB
     Dosage: 500 MILLIGRAM, QD, 250 MG BID
     Route: 048
     Dates: start: 20230526

REACTIONS (1)
  - Hepatic encephalopathy [Recovered/Resolved]

NARRATIVE: CASE EVENT DATE: 20230803
